FAERS Safety Report 10709719 (Version 1)
Quarter: 2015Q1

REPORT INFORMATION
  Report Type: Spontaneous
  Country: ES (occurrence: ES)
  Receive Date: 20150114
  Receipt Date: 20150114
  Transmission Date: 20150721
  Serious: Yes (Other)
  Sender: FDA-Public Use
  Company Number: ES-VERTEX PHARMACEUTICALS-2015-000130

PATIENT
  Age: 66 Year
  Sex: Male

DRUGS (11)
  1. PEGASYS [Suspect]
     Active Substance: PEGINTERFERON ALFA-2A
     Indication: PRODUCT USED FOR UNKNOWN INDICATION
     Dosage: 180 ?G, QW
     Route: 065
     Dates: start: 20140207
  2. AERIUS [Concomitant]
     Active Substance: DESLORATADINE
     Indication: RASH
     Dosage: UNK
     Route: 065
     Dates: start: 20140421
  3. ATARAX [Concomitant]
     Active Substance: HYDROXYZINE\HYDROXYZINE HYDROCHLORIDE
     Indication: RASH
     Dosage: 25 MG, UNK
     Route: 065
     Dates: start: 20140507, end: 20140601
  4. PREDNISONE. [Concomitant]
     Active Substance: PREDNISONE
     Indication: RASH
     Dosage: 20 MG, UNK
     Route: 065
     Dates: start: 20140507, end: 20140601
  5. INCIVO [Suspect]
     Active Substance: TELAPREVIR
     Indication: PRODUCT USED FOR UNKNOWN INDICATION
     Route: 048
     Dates: start: 20140207, end: 20140502
  6. REBETOL [Suspect]
     Active Substance: RIBAVIRIN
     Dosage: 1000 MG, QD
     Route: 065
     Dates: start: 20140207
  7. REBETOL [Suspect]
     Active Substance: RIBAVIRIN
     Indication: PRODUCT USED FOR UNKNOWN INDICATION
     Dosage: 600 MG, QD
     Route: 065
     Dates: start: 20140320
  8. CLOXACILLIN [Concomitant]
     Active Substance: CLOXACILLIN
     Indication: PRODUCT USED FOR UNKNOWN INDICATION
     Dosage: 500 MG, UNK
     Route: 065
     Dates: start: 20140512
  9. REBETOL [Suspect]
     Active Substance: RIBAVIRIN
     Dosage: 800 MG, QD
     Route: 065
     Dates: start: 20140602
  10. ATARAX [Concomitant]
     Active Substance: HYDROXYZINE\HYDROXYZINE HYDROCHLORIDE
     Dosage: 10 MG, UNK
     Route: 065
     Dates: start: 20140602
  11. PREDNISONE. [Concomitant]
     Active Substance: PREDNISONE
     Dosage: 10 MG, UNK
     Route: 065

REACTIONS (3)
  - Rash [Not Recovered/Not Resolved]
  - Viral load increased [Unknown]
  - Anaemia [Unknown]

NARRATIVE: CASE EVENT DATE: 20140507
